FAERS Safety Report 6522990-3 (Version None)
Quarter: 2009Q4

REPORT INFORMATION
  Report Type: 
  Country: None (occurrence: None)
  Receive Date: 20091230
  Receipt Date: 20091221
  Transmission Date: 20100525
  Serious: Yes (Other)
  Sender: FDA-Public Use
  Company Number: GR-GENENTECH-296231

PATIENT
  Age: 72 Year
  Sex: Male

DRUGS (1)
  1. RITUXIMAB [Suspect]
     Indication: IDIOPATHIC THROMBOCYTOPENIC PURPURA
     Dosage: UNK
     Route: 065
     Dates: end: 20080505

REACTIONS (1)
  - INTERSTITIAL LUNG DISEASE [None]
